FAERS Safety Report 25255486 (Version 1)
Quarter: 2025Q2

REPORT INFORMATION
  Report Type: Spontaneous
  Country: IT (occurrence: IT)
  Receive Date: 20250430
  Receipt Date: 20250430
  Transmission Date: 20250716
  Serious: Yes (Death, Hospitalization)
  Sender: MYLAN
  Company Number: IT-MYLANLABS-2025M1036692

PATIENT
  Age: 62 Year
  Sex: Female

DRUGS (64)
  1. PREDNISONE [Suspect]
     Active Substance: PREDNISONE
     Indication: Hepatotoxicity
     Dosage: 50 MILLIGRAM, QD
  2. PREDNISONE [Suspect]
     Active Substance: PREDNISONE
     Indication: Immune-mediated hepatic disorder
     Dosage: 50 MILLIGRAM, QD
  3. PREDNISONE [Suspect]
     Active Substance: PREDNISONE
     Dosage: 50 MILLIGRAM, QD
     Route: 065
  4. PREDNISONE [Suspect]
     Active Substance: PREDNISONE
     Dosage: 50 MILLIGRAM, QD
     Route: 065
  5. PREDNISONE [Suspect]
     Active Substance: PREDNISONE
     Dosage: 25 MILLIGRAM, QD,DOSE REDUCED
  6. PREDNISONE [Suspect]
     Active Substance: PREDNISONE
     Dosage: 25 MILLIGRAM, QD,DOSE REDUCED
  7. PREDNISONE [Suspect]
     Active Substance: PREDNISONE
     Dosage: 25 MILLIGRAM, QD,DOSE REDUCED
     Route: 065
  8. PREDNISONE [Suspect]
     Active Substance: PREDNISONE
     Dosage: 25 MILLIGRAM, QD,DOSE REDUCED
     Route: 065
  9. FLUOROURACIL [Suspect]
     Active Substance: FLUOROURACIL
     Indication: Squamous cell carcinoma of skin
  10. FLUOROURACIL [Suspect]
     Active Substance: FLUOROURACIL
     Route: 065
  11. FLUOROURACIL [Suspect]
     Active Substance: FLUOROURACIL
     Route: 065
  12. FLUOROURACIL [Suspect]
     Active Substance: FLUOROURACIL
  13. PACLITAXEL [Suspect]
     Active Substance: PACLITAXEL
     Indication: Squamous cell carcinoma of skin
  14. PACLITAXEL [Suspect]
     Active Substance: PACLITAXEL
     Route: 065
  15. PACLITAXEL [Suspect]
     Active Substance: PACLITAXEL
     Route: 065
  16. PACLITAXEL [Suspect]
     Active Substance: PACLITAXEL
  17. CEMIPLIMAB [Suspect]
     Active Substance: CEMIPLIMAB
     Indication: Squamous cell carcinoma of skin
     Dosage: 350 MILLIGRAM, Q3W
     Dates: start: 202111
  18. CEMIPLIMAB [Suspect]
     Active Substance: CEMIPLIMAB
     Dosage: 350 MILLIGRAM, Q3W
     Dates: start: 202111
  19. CEMIPLIMAB [Suspect]
     Active Substance: CEMIPLIMAB
     Dosage: 350 MILLIGRAM, Q3W
     Route: 042
     Dates: start: 202111
  20. CEMIPLIMAB [Suspect]
     Active Substance: CEMIPLIMAB
     Dosage: 350 MILLIGRAM, Q3W
     Route: 042
     Dates: start: 202111
  21. CEMIPLIMAB [Suspect]
     Active Substance: CEMIPLIMAB
     Dates: end: 202209
  22. CEMIPLIMAB [Suspect]
     Active Substance: CEMIPLIMAB
     Dates: end: 202209
  23. CEMIPLIMAB [Suspect]
     Active Substance: CEMIPLIMAB
     Route: 042
     Dates: end: 202209
  24. CEMIPLIMAB [Suspect]
     Active Substance: CEMIPLIMAB
     Route: 042
     Dates: end: 202209
  25. METHYLPREDNISOLONE [Suspect]
     Active Substance: METHYLPREDNISOLONE
     Indication: Hepatotoxicity
     Dosage: 2 MILLIGRAM/KILOGRAM, QD
  26. METHYLPREDNISOLONE [Suspect]
     Active Substance: METHYLPREDNISOLONE
     Dosage: 2 MILLIGRAM/KILOGRAM, QD
     Route: 042
  27. METHYLPREDNISOLONE [Suspect]
     Active Substance: METHYLPREDNISOLONE
     Dosage: 2 MILLIGRAM/KILOGRAM, QD
     Route: 042
  28. METHYLPREDNISOLONE [Suspect]
     Active Substance: METHYLPREDNISOLONE
     Dosage: 2 MILLIGRAM/KILOGRAM, QD
  29. MITOMYCIN [Suspect]
     Active Substance: MITOMYCIN
     Indication: Squamous cell carcinoma of skin
  30. MITOMYCIN [Suspect]
     Active Substance: MITOMYCIN
     Route: 065
  31. MITOMYCIN [Suspect]
     Active Substance: MITOMYCIN
     Route: 065
  32. MITOMYCIN [Suspect]
     Active Substance: MITOMYCIN
  33. CARBOPLATIN [Suspect]
     Active Substance: CARBOPLATIN
     Indication: Squamous cell carcinoma of skin
  34. CARBOPLATIN [Suspect]
     Active Substance: CARBOPLATIN
     Route: 065
  35. CARBOPLATIN [Suspect]
     Active Substance: CARBOPLATIN
     Route: 065
  36. CARBOPLATIN [Suspect]
     Active Substance: CARBOPLATIN
  37. INSULIN NOS [Concomitant]
     Active Substance: INSULIN NOS
     Indication: Type 1 diabetes mellitus
  38. INSULIN NOS [Concomitant]
     Active Substance: INSULIN NOS
  39. INSULIN NOS [Concomitant]
     Active Substance: INSULIN NOS
     Route: 042
  40. INSULIN NOS [Concomitant]
     Active Substance: INSULIN NOS
     Route: 042
  41. INSULIN NOS [Concomitant]
     Active Substance: INSULIN NOS
     Dosage: UNK, QD, 0.48 U/KG; DOSE INCREASED
  42. INSULIN NOS [Concomitant]
     Active Substance: INSULIN NOS
     Dosage: UNK, QD, 0.48 U/KG; DOSE INCREASED
  43. INSULIN NOS [Concomitant]
     Active Substance: INSULIN NOS
     Dosage: UNK, QD, 0.48 U/KG; DOSE INCREASED
     Route: 042
  44. INSULIN NOS [Concomitant]
     Active Substance: INSULIN NOS
     Dosage: UNK, QD, 0.48 U/KG; DOSE INCREASED
     Route: 042
  45. INSULIN NOS [Concomitant]
     Active Substance: INSULIN NOS
     Dosage: UNK, QD, 1.35 U/KG; DOSE INCREASED
  46. INSULIN NOS [Concomitant]
     Active Substance: INSULIN NOS
     Dosage: UNK, QD, 1.35 U/KG; DOSE INCREASED
     Route: 042
  47. INSULIN NOS [Concomitant]
     Active Substance: INSULIN NOS
     Dosage: UNK, QD, 1.35 U/KG; DOSE INCREASED
  48. INSULIN NOS [Concomitant]
     Active Substance: INSULIN NOS
     Dosage: UNK, QD, 1.35 U/KG; DOSE INCREASED
     Route: 042
  49. SODIUM BICARBONATE [Concomitant]
     Active Substance: SODIUM BICARBONATE
     Indication: Diabetic ketoacidosis
  50. SODIUM BICARBONATE [Concomitant]
     Active Substance: SODIUM BICARBONATE
     Route: 065
  51. SODIUM BICARBONATE [Concomitant]
     Active Substance: SODIUM BICARBONATE
     Route: 065
  52. SODIUM BICARBONATE [Concomitant]
     Active Substance: SODIUM BICARBONATE
  53. POTASSIUM [Concomitant]
     Active Substance: POTASSIUM
     Indication: Diabetic ketoacidosis
  54. POTASSIUM [Concomitant]
     Active Substance: POTASSIUM
     Route: 065
  55. POTASSIUM [Concomitant]
     Active Substance: POTASSIUM
     Route: 065
  56. POTASSIUM [Concomitant]
     Active Substance: POTASSIUM
  57. LEVOTHYROXINE [Concomitant]
     Active Substance: LEVOTHYROXINE
     Indication: Diabetic ketoacidosis
  58. LEVOTHYROXINE [Concomitant]
     Active Substance: LEVOTHYROXINE
     Indication: Autoimmune thyroiditis
  59. LEVOTHYROXINE [Concomitant]
     Active Substance: LEVOTHYROXINE
     Route: 065
  60. LEVOTHYROXINE [Concomitant]
     Active Substance: LEVOTHYROXINE
     Route: 065
  61. LEVOTHYROXINE [Concomitant]
     Active Substance: LEVOTHYROXINE
     Dosage: DOSE INCREASED
  62. LEVOTHYROXINE [Concomitant]
     Active Substance: LEVOTHYROXINE
     Dosage: DOSE INCREASED
  63. LEVOTHYROXINE [Concomitant]
     Active Substance: LEVOTHYROXINE
     Dosage: DOSE INCREASED
     Route: 065
  64. LEVOTHYROXINE [Concomitant]
     Active Substance: LEVOTHYROXINE
     Dosage: DOSE INCREASED
     Route: 065

REACTIONS (5)
  - Drug ineffective [Fatal]
  - Disease progression [Fatal]
  - Hyperglycaemia [Recovering/Resolving]
  - Diabetic ketoacidosis [Recovering/Resolving]
  - Type 1 diabetes mellitus [Recovering/Resolving]
